FAERS Safety Report 5765181-6 (Version None)
Quarter: 2008Q2

REPORT INFORMATION
  Report Type: 
  Country: None (occurrence: None)
  Receive Date: 20080611
  Receipt Date: 20080602
  Transmission Date: 20081010
  Serious: Yes (Hospitalization)
  Sender: FDA-Public Use
  Company Number: US-AMGEN-QUU284195

PATIENT
  Sex: Female

DRUGS (2)
  1. ENBREL [Suspect]
     Indication: RHEUMATOID ARTHRITIS
     Route: 058
     Dates: start: 20080415
  2. METHOTREXATE [Concomitant]
     Route: 048
     Dates: start: 20071202

REACTIONS (3)
  - FALL [None]
  - HIP FRACTURE [None]
  - INJECTION SITE BRUISING [None]
